FAERS Safety Report 18939766 (Version 1)
Quarter: 2021Q1

REPORT INFORMATION
  Report Type: Spontaneous
  Country: US (occurrence: US)
  Receive Date: 20210225
  Receipt Date: 20210225
  Transmission Date: 20210420
  Serious: No
  Sender: FDA-Public Use
  Company Number: None

PATIENT
  Age: 73 Year
  Sex: Female
  Weight: 60.84 kg

DRUGS (13)
  1. ASCORBIC ACID 1000MG [Concomitant]
  2. EPINEPHRINE 0.3MG/0.3ML [Concomitant]
     Active Substance: EPINEPHRINE
  3. TYLENOL [Concomitant]
     Active Substance: ACETAMINOPHEN
  4. ONDANSETRON 4MG [Concomitant]
     Active Substance: ONDANSETRON
  5. ACYCLOVIR 800MG [Concomitant]
     Active Substance: ACYCLOVIR
  6. PRESERVISION AREDS2 [Concomitant]
  7. CAPECITABINE. [Suspect]
     Active Substance: CAPECITABINE
     Indication: BREAST CANCER
     Route: 048
     Dates: start: 20210211
  8. MULTIVITAMIN [Concomitant]
     Active Substance: VITAMINS
  9. IMODIUM A?D 2MG [Concomitant]
  10. ALLEGRA ALLERGY 60MG [Concomitant]
  11. CALCIUM CARBONATE?VITAMIN D 600MG?400U [Concomitant]
  12. FLUARIX QUADRIVALENT 0.5ML [Concomitant]
  13. MIRALAX 17GM [Concomitant]

REACTIONS (4)
  - Food aversion [None]
  - Constipation [None]
  - Nausea [None]
  - Vomiting [None]

NARRATIVE: CASE EVENT DATE: 20210224
